FAERS Safety Report 13741691 (Version 1)
Quarter: 2017Q3

REPORT INFORMATION
  Report Type: Spontaneous
  Country: SA (occurrence: SA)
  Receive Date: 20170711
  Receipt Date: 20170711
  Transmission Date: 20171127
  Serious: Yes (Hospitalization, Congenital Anomaly, Other)
  Sender: FDA-Public Use
  Company Number: SA-MYLANLABS-2017M1040525

PATIENT

DRUGS (1)
  1. DESOGESTREL/ETHINYL ESTRADIOL [Suspect]
     Active Substance: DESOGESTREL\ETHINYL ESTRADIOL
     Indication: PRODUCT USED FOR UNKNOWN INDICATION
     Route: 064

REACTIONS (9)
  - Congenital spinal cord anomaly [Unknown]
  - Congenital genitourinary abnormality [Unknown]
  - Congenital scoliosis [None]
  - Congenital ectopic bladder [Unknown]
  - Developmental hip dysplasia [None]
  - Meningomyelocele [None]
  - Anal atresia [Unknown]
  - Maternal drugs affecting foetus [None]
  - Exomphalos [Unknown]
